FAERS Safety Report 7038827-2 (Version None)
Quarter: 2010Q4

REPORT INFORMATION
  Report Type: 
  Country: None (occurrence: None)
  Receive Date: 20101012
  Receipt Date: 20101004
  Transmission Date: 20110411
  Serious: No
  Sender: FDA-Public Use
  Company Number: US-BIOGENIDEC-2010BI034812

PATIENT
  Age: 31 Year
  Sex: Male

DRUGS (1)
  1. TYSABRI [Suspect]
     Indication: MULTIPLE SCLEROSIS
     Route: 042
     Dates: start: 20100902

REACTIONS (5)
  - ARTHRALGIA [None]
  - BLOOD PRESSURE INCREASED [None]
  - FEELING COLD [None]
  - MYALGIA [None]
  - TREMOR [None]
